FAERS Safety Report 6901348-9 (Version None)
Quarter: 2010Q3

REPORT INFORMATION
  Report Type: 
  Country: None (occurrence: None)
  Receive Date: 20100803
  Receipt Date: 20080121
  Transmission Date: 20110219
  Serious: No
  Sender: FDA-Public Use
  Company Number: US-PFIZER INC-2008007038

PATIENT
  Age: 77 Year
  Sex: Female
  Weight: 55.3 kg

DRUGS (6)
  1. LYRICA [Suspect]
     Indication: PAIN
     Route: 048
     Dates: start: 20080114
  2. DULOXETINE HYDROCHLORIDE [Concomitant]
  3. GLYCERYL TRINITRATE [Concomitant]
  4. ZYPREXA [Concomitant]
  5. TRAZODONE [Concomitant]
  6. ACETAMINOPHEN [Concomitant]

REACTIONS (1)
  - DYSPHAGIA [None]
